FAERS Safety Report 23345806 (Version 5)
Quarter: 2024Q1

REPORT INFORMATION
  Report Type: Spontaneous
  Country: CA (occurrence: None)
  Receive Date: 20231228
  Receipt Date: 20240117
  Transmission Date: 20240409
  Serious: Yes (Other)
  Sender: FDA-Public Use
  Company Number: CA-PFIZER INC-202300418758

PATIENT
  Age: 59 Year
  Sex: Female
  Weight: 84 kg

DRUGS (12)
  1. METHOTREXATE [Suspect]
     Active Substance: METHOTREXATE
     Indication: Product used for unknown indication
  2. INFLECTRA [Suspect]
     Active Substance: INFLIXIMAB-DYYB
     Indication: Crohn^s disease
     Dosage: Q 0, 2, 6 WEEKS THEN EVERY 8 WEEKS
     Dates: start: 20230124
  3. INFLECTRA [Suspect]
     Active Substance: INFLIXIMAB-DYYB
     Dosage: Q 0, 2, 6 WEEKS THEN EVERY 8 WEEKS
     Dates: start: 20231018
  4. INFLECTRA [Suspect]
     Active Substance: INFLIXIMAB-DYYB
     Dosage: REINDUCTION THEN EVERY 6 WEEKS
     Dates: start: 20231208
  5. INFLECTRA [Suspect]
     Active Substance: INFLIXIMAB-DYYB
     Dosage: 420MG, 5MG/KG, 3 WEEKS AND 6 DAYS (W2 OF REINDUCTION)
     Dates: start: 20240104
  6. ADMELOG [Concomitant]
     Active Substance: INSULIN LISPRO
  7. CALCIUM [Concomitant]
     Active Substance: CALCIUM
  8. JANUVIA [Concomitant]
     Active Substance: SITAGLIPTIN PHOSPHATE
  9. PANTOPRAZOLE [Concomitant]
     Active Substance: PANTOPRAZOLE
  10. PREDNISONE [Concomitant]
     Active Substance: PREDNISONE
  11. TRESIBA [Concomitant]
     Active Substance: INSULIN DEGLUDEC
  12. CHOLECALCIFEROL [Concomitant]
     Active Substance: CHOLECALCIFEROL

REACTIONS (17)
  - Immunodeficiency [Unknown]
  - Hypertension [Recovered/Resolved]
  - Chest discomfort [Recovered/Resolved]
  - Erythema [Recovered/Resolved]
  - Paraesthesia oral [Recovered/Resolved]
  - Pharyngeal paraesthesia [Recovered/Resolved]
  - Lip swelling [Recovered/Resolved]
  - Drug specific antibody present [Unknown]
  - Drug level decreased [Unknown]
  - Sleep disorder [Recovering/Resolving]
  - Nasopharyngitis [Recovering/Resolving]
  - Fatigue [Recovering/Resolving]
  - Headache [Recovering/Resolving]
  - Oropharyngeal pain [Recovering/Resolving]
  - Productive cough [Recovering/Resolving]
  - Secretion discharge [Recovering/Resolving]
  - Feeling of body temperature change [Recovering/Resolving]

NARRATIVE: CASE EVENT DATE: 20231201
